FAERS Safety Report 25555719 (Version 1)
Quarter: 2025Q3

REPORT INFORMATION
  Report Type: Report from Study
  Country: US (occurrence: US)
  Receive Date: 20250715
  Receipt Date: 20250715
  Transmission Date: 20251021
  Serious: Yes (Death)
  Sender: PFIZER
  Company Number: US-PFIZER INC-202500085654

PATIENT
  Age: 95 Year
  Sex: Female

DRUGS (5)
  1. VYNDAMAX [Suspect]
     Active Substance: TAFAMIDIS
     Dosage: 61 MG,TAKE 1 CAPSULE BY MOUTH DAILY
     Route: 048
     Dates: start: 20250415
  2. CALCIUM [Concomitant]
     Active Substance: CALCIUM
  3. ELIQUIS [Concomitant]
     Active Substance: APIXABAN
  4. IBUPROFEN [Concomitant]
     Active Substance: IBUPROFEN
  5. VITAMIN D NOS [Concomitant]
     Active Substance: CHOLECALCIFEROL\ERGOCALCIFEROL

REACTIONS (1)
  - Death [Fatal]

NARRATIVE: CASE EVENT DATE: 20250601
